FAERS Safety Report 8375986-3 (Version None)
Quarter: 2012Q2

REPORT INFORMATION
  Report Type: 
  Country: None (occurrence: None)
  Receive Date: 20120518
  Receipt Date: 20120503
  Transmission Date: 20120825
  Serious: Yes (Other)
  Sender: FDA-Public Use
  Company Number: 2012P1020127

PATIENT
  Sex: Male

DRUGS (1)
  1. WARFARIN SODIUM [Suspect]

REACTIONS (3)
  - SKIN DISCOLOURATION [None]
  - CARDIAC FAILURE [None]
  - LOSS OF CONSCIOUSNESS [None]
